FAERS Safety Report 22313416 (Version 1)
Quarter: 2023Q2

REPORT INFORMATION
  Report Type: Report from Study
  Country: US (occurrence: US)
  Receive Date: 20230512
  Receipt Date: 20230512
  Transmission Date: 20230722
  Serious: Yes (Other)
  Sender: FDA-Public Use
  Company Number: US-ABBVIE-4761754

PATIENT
  Age: 72 Year
  Sex: Female

DRUGS (1)
  1. HUMIRA [Suspect]
     Active Substance: ADALIMUMAB
     Indication: Crohn^s disease
     Dosage: FORM STRENGTH: 40 MG?CITRATE FREE
     Route: 058
     Dates: start: 20151223

REACTIONS (3)
  - Tonsillolith [Recovering/Resolving]
  - Cough [Recovering/Resolving]
  - Tonsillar erythema [Recovering/Resolving]

NARRATIVE: CASE EVENT DATE: 20180509
